FAERS Safety Report 6742062-2 (Version None)
Quarter: 2010Q2

REPORT INFORMATION
  Report Type: 
  Country: None (occurrence: None)
  Receive Date: 20100526
  Receipt Date: 20100517
  Transmission Date: 20101027
  Serious: Yes (Hospitalization, Other)
  Sender: FDA-Public Use
  Company Number: DE-TEVA-233811ISR

PATIENT
  Sex: Female
  Weight: 75 kg

DRUGS (2)
  1. COPAXONE [Suspect]
     Indication: MULTIPLE SCLEROSIS
     Route: 058
     Dates: start: 20010101, end: 20100501
  2. JODTHYROX [Concomitant]
     Route: 048
     Dates: start: 20050101

REACTIONS (3)
  - ANAEMIA HAEMOLYTIC AUTOIMMUNE [None]
  - CIRCULATORY COLLAPSE [None]
  - COOMBS TEST POSITIVE [None]
